FAERS Safety Report 5646977-8 (Version None)
Quarter: 2008Q1

REPORT INFORMATION
  Report Type: 
  Country: None (occurrence: None)
  Receive Date: 20080303
  Receipt Date: 20080226
  Transmission Date: 20080703
  Serious: Yes (Hospitalization)
  Sender: FDA-Public Use
  Company Number: B0505778A

PATIENT
  Age: 70 Year
  Sex: Male
  Weight: 50 kg

DRUGS (6)
  1. VALTREX [Suspect]
     Indication: ORAL HERPES
     Dosage: 1000MG THREE TIMES PER DAY
     Route: 048
     Dates: start: 20080126, end: 20080127
  2. SELBEX [Concomitant]
     Dosage: 150MG PER DAY
     Route: 048
     Dates: start: 20080126, end: 20080127
  3. CALTAN [Concomitant]
     Dosage: 3000MG PER DAY
     Route: 048
  4. LENDORMIN [Concomitant]
     Indication: INSOMNIA
     Dosage: .25MG PER DAY
     Route: 048
  5. ADALAT [Concomitant]
     Indication: HYPERTENSION
     Dosage: 60MG PER DAY
     Route: 048
  6. NU-LOTAN [Concomitant]
     Indication: HYPERTENSION
     Dosage: 100MG PER DAY
     Route: 048

REACTIONS (2)
  - DELIRIUM [None]
  - HAEMODIALYSIS [None]
